FAERS Safety Report 4827222-X (Version None)
Quarter: 2005Q4

REPORT INFORMATION
  Report Type: 
  Country: None (occurrence: None)
  Receive Date: 20051014
  Receipt Date: 20050617
  Transmission Date: 20060501
  Serious: No
  Sender: FDA-Public Use
  Company Number: 2005SP001467

PATIENT
  Age: 48 Year
  Sex: Female
  Weight: 56.6996 kg

DRUGS (3)
  1. LUNESTA [Suspect]
     Indication: INSOMNIA
     Dosage: 3 MG; HS; ORAL
     Route: 048
     Dates: start: 20050501, end: 20050501
  2. PROZAC [Concomitant]
  3. ADDERALL 10 [Concomitant]

REACTIONS (3)
  - AKATHISIA [None]
  - DRUG INEFFECTIVE [None]
  - INSOMNIA [None]
